FAERS Safety Report 7378307-8 (Version None)
Quarter: 2011Q1

REPORT INFORMATION
  Report Type: 
  Country: None (occurrence: None)
  Receive Date: 20110328
  Receipt Date: 20110315
  Transmission Date: 20110831
  Serious: Yes (Other)
  Sender: FDA-Public Use
  Company Number: FR-JNJFOC-20110202233

PATIENT
  Age: 32 Year
  Sex: Female
  Weight: 73 kg

DRUGS (10)
  1. REMICADE [Suspect]
     Route: 042
  2. REMICADE [Suspect]
     Route: 042
  3. REMICADE [Suspect]
     Route: 042
  4. REMICADE [Suspect]
     Indication: COLITIS ULCERATIVE
     Dosage: 8TH DOSE
     Route: 042
  5. REMICADE [Suspect]
     Route: 042
  6. IMUREL [Concomitant]
     Indication: COLITIS ULCERATIVE
     Route: 048
  7. REMICADE [Suspect]
     Route: 042
  8. HYDROCORTISONE [Concomitant]
     Indication: PREMEDICATION
  9. REMICADE [Suspect]
     Dosage: SIX INFUSIONS, DATES NOT PROVIDED
     Route: 042
  10. REMICADE [Suspect]
     Route: 042

REACTIONS (8)
  - PARAESTHESIA [None]
  - PRESYNCOPE [None]
  - INFUSION RELATED REACTION [None]
  - ERYTHEMA [None]
  - HYPOTENSION [None]
  - RESPIRATORY DISORDER [None]
  - CHEST DISCOMFORT [None]
  - BODY TEMPERATURE INCREASED [None]
